FAERS Safety Report 8212713-4 (Version None)
Quarter: 2012Q1

REPORT INFORMATION
  Report Type: 
  Country: None (occurrence: None)
  Receive Date: 20120315
  Receipt Date: 20120306
  Transmission Date: 20120608
  Serious: No
  Sender: FDA-Public Use
  Company Number: US-PFIZER INC-2012036073

PATIENT
  Sex: Female

DRUGS (2)
  1. NORGESTREL AND ETHINYL ESTRADIOL [Suspect]
     Indication: OFF LABEL USE
  2. NORGESTREL AND ETHINYL ESTRADIOL [Suspect]
     Indication: MENSTRUAL CYCLE MANAGEMENT

REACTIONS (6)
  - PRODUCT QUALITY ISSUE [None]
  - HORMONE LEVEL ABNORMAL [None]
  - MENSTRUATION IRREGULAR [None]
  - CIRCUMSTANCE OR INFORMATION CAPABLE OF LEADING TO MEDICATION ERROR [None]
  - MENORRHAGIA [None]
  - DRUG INEFFECTIVE FOR UNAPPROVED INDICATION [None]
